FAERS Safety Report 6929699-2 (Version None)
Quarter: 2010Q3

REPORT INFORMATION
  Report Type: 
  Country: None (occurrence: None)
  Receive Date: 20100818
  Receipt Date: 20100811
  Transmission Date: 20110219
  Serious: Yes (Other)
  Sender: FDA-Public Use
  Company Number: JP-BAYER-200912843BYL

PATIENT
  Age: 81 Year
  Sex: Male

DRUGS (24)
  1. NEXAVAR [Suspect]
     Indication: RENAL CELL CARCINOMA
     Dosage: TOTAL DAILY DOSE: 800 MG  UNIT DOSE: 200 MG
     Route: 048
     Dates: start: 20090706, end: 20090718
  2. NEXAVAR [Suspect]
     Dosage: TOTAL DAILY DOSE: 400 MG  UNIT DOSE: 200 MG
     Route: 048
     Dates: start: 20090812, end: 20090813
  3. NEXAVAR [Suspect]
     Dosage: TOTAL DAILY DOSE: 400 MG  UNIT DOSE: 200 MG
     Route: 048
     Dates: start: 20090814, end: 20090814
  4. FERROMIA [Concomitant]
     Indication: ANAEMIA
     Dosage: TOTAL DAILY DOSE: 50 MG  UNIT DOSE: 50 MG
     Route: 048
     Dates: start: 20090604, end: 20090623
  5. FERROMIA [Concomitant]
     Dosage: TOTAL DAILY DOSE: 50 MG  UNIT DOSE: 50 MG
     Route: 048
     Dates: start: 20090629, end: 20090820
  6. FLIVAS [Concomitant]
     Dosage: TOTAL DAILY DOSE: 50 MG  UNIT DOSE: 25 MG
     Route: 048
     Dates: start: 20090629, end: 20090820
  7. FLIVAS [Concomitant]
     Dosage: TOTAL DAILY DOSE: 50 MG  UNIT DOSE: 25 MG
     Route: 048
     Dates: start: 20090604, end: 20090623
  8. KERATINAMIN [Concomitant]
     Indication: PROPHYLAXIS
     Dosage: SEVERAL TIMES/DAY
     Route: 061
     Dates: start: 20090706, end: 20090801
  9. DEXTROSE [Concomitant]
     Dosage: TOTAL DAILY DOSE: 40 ML  UNIT DOSE: 20 %
     Route: 042
     Dates: start: 20090718, end: 20090718
  10. DEXTROSE [Concomitant]
     Dosage: TOTAL DAILY DOSE: 40 ML  UNIT DOSE: 20 %
     Route: 042
     Dates: start: 20090721, end: 20090721
  11. DEXTROSE [Concomitant]
     Dosage: TOTAL DAILY DOSE: 40 ML  UNIT DOSE: 20 %
     Route: 042
     Dates: start: 20090724, end: 20090724
  12. VITAMEDIN [Concomitant]
     Dosage: TOTAL DAILY DOSE: 1 DF
     Route: 042
     Dates: start: 20090718, end: 20090718
  13. VITAMEDIN [Concomitant]
     Dosage: TOTAL DAILY DOSE: 1 DF
     Route: 042
     Dates: start: 20090724, end: 20090724
  14. VITAMEDIN [Concomitant]
     Dosage: TOTAL DAILY DOSE: 1 DF
     Route: 042
     Dates: start: 20090721, end: 20090721
  15. METOCLOPRAMIDE HYDROCHLORIDE [Concomitant]
     Dosage: TOTAL DAILY DOSE: 10 MG  UNIT DOSE: 10 MG
     Route: 042
     Dates: start: 20090724, end: 20090724
  16. METOCLOPRAMIDE HYDROCHLORIDE [Concomitant]
     Dosage: TOTAL DAILY DOSE: 10 MG  UNIT DOSE: 10 MG
     Route: 042
     Dates: start: 20090718, end: 20090718
  17. METOCLOPRAMIDE HYDROCHLORIDE [Concomitant]
     Dosage: TOTAL DAILY DOSE: 10 MG  UNIT DOSE: 10 MG
     Route: 042
     Dates: start: 20090721, end: 20090721
  18. LACTEC [Concomitant]
     Dosage: TOTAL DAILY DOSE: 500 ML  UNIT DOSE: 500 ML
     Route: 041
     Dates: start: 20090721, end: 20090721
  19. LACTEC [Concomitant]
     Route: 041
     Dates: start: 20090718, end: 20090718
  20. LACTEC [Concomitant]
     Dosage: TOTAL DAILY DOSE: 500 ML  UNIT DOSE: 500 ML
     Route: 041
     Dates: start: 20090724, end: 20090724
  21. MARZULENE [Concomitant]
     Indication: PROPHYLAXIS
     Dosage: TOTAL DAILY DOSE: 1 DF
     Route: 048
     Dates: start: 20090604, end: 20090607
  22. LOXONIN [Concomitant]
     Indication: PROPHYLAXIS
     Dosage: TOTAL DAILY DOSE: 60 MG  UNIT DOSE: 60 MG
     Route: 048
     Dates: start: 20090604, end: 20090607
  23. TAKEPRON [Concomitant]
     Indication: GASTRITIS PROPHYLAXIS
     Dosage: UNIT DOSE: 15 MG
     Route: 048
     Dates: start: 20090724, end: 20090731
  24. TAKEPRON [Concomitant]
     Dosage: UNIT DOSE: 15 MG
     Route: 048
     Dates: start: 20090721, end: 20090723

REACTIONS (10)
  - BLOOD LACTATE DEHYDROGENASE INCREASED [None]
  - C-REACTIVE PROTEIN INCREASED [None]
  - ERYTHEMA MULTIFORME [None]
  - FATIGUE [None]
  - FIBRIN D DIMER INCREASED [None]
  - FIBRIN DEGRADATION PRODUCTS INCREASED [None]
  - LIPASE INCREASED [None]
  - PALMAR-PLANTAR ERYTHRODYSAESTHESIA SYNDROME [None]
  - RASH [None]
  - STOMATITIS [None]
